FAERS Safety Report 8304595-7 (Version None)
Quarter: 2012Q2

REPORT INFORMATION
  Report Type: 
  Country: None (occurrence: None)
  Receive Date: 20120423
  Receipt Date: 20120416
  Transmission Date: 20120825
  Serious: Yes (Other)
  Sender: FDA-Public Use
  Company Number: US-BAYER-201013552NA

PATIENT
  Age: 29 Year
  Sex: Female
  Weight: 62 kg

DRUGS (13)
  1. PROVERA [Concomitant]
     Indication: AMENORRHOEA
     Dates: start: 20070901
  2. LEXAPRO [Concomitant]
  3. YAZ [Suspect]
     Indication: CONTRACEPTION
     Dates: start: 20070901, end: 20071201
  4. YASMIN [Suspect]
     Dates: start: 20070901, end: 20071201
  5. LOVAZA [Concomitant]
  6. KLONOPIN [Concomitant]
  7. MULTI-VITAMIN [Concomitant]
  8. YAZ [Suspect]
     Indication: ACNE
  9. AMBIEN [Concomitant]
  10. DROSPIRENONE AND ETHINYL ESTRADIOL [Suspect]
     Dates: start: 20070901, end: 20071201
  11. VICODIN [Concomitant]
  12. YAZ [Suspect]
     Indication: PREMENSTRUAL SYNDROME
  13. DILAUDID [Concomitant]

REACTIONS (7)
  - DEEP VEIN THROMBOSIS [None]
  - SYNCOPE [None]
  - VAGINAL HAEMORRHAGE [None]
  - CHEST PAIN [None]
  - PREGNANCY ON ORAL CONTRACEPTIVE [None]
  - INCISION SITE PAIN [None]
  - ABORTION SPONTANEOUS [None]
